FAERS Safety Report 8390335 (Version 3)
Quarter: 2013Q1

REPORT INFORMATION
  Report Type: Spontaneous
  Country: RU (occurrence: RU)
  Receive Date: 20120203
  Receipt Date: 20130204
  Transmission Date: 20140127
  Serious: Yes (Life-Threatening, Hospitalization, Other)
  Sender: FDA-Public Use
  Company Number: RU-ABBOTT-12P-251-0898836-00

PATIENT
  Age: 12 Year
  Sex: Male
  Weight: 36 kg

DRUGS (7)
  1. SEVORANE [Suspect]
     Indication: GENERAL ANAESTHESIA
     Dosage: 3 VOL %
     Route: 055
     Dates: start: 20120130, end: 20120130
  2. SEVORANE LIQUID FOR INHALATION [Suspect]
     Indication: DENTAL CARE
  3. ATROPINE [Concomitant]
     Indication: PREMEDICATION
     Route: 042
     Dates: start: 20120130, end: 20120130
  4. PROPOFOL [Concomitant]
     Indication: ANAESTHESIA
     Dosage: 3 MG/KG/HOUR
     Route: 042
     Dates: start: 20120130, end: 20120130
  5. SUPRASTIN [Concomitant]
     Indication: PREMEDICATION
     Route: 042
     Dates: start: 20120130, end: 20120130
  6. FULSED [Concomitant]
     Indication: PREMEDICATION
     Dosage: 3 MG DAILY
     Route: 042
     Dates: start: 20120130, end: 20120130
  7. FENTANYL [Concomitant]
     Indication: PRODUCT USED FOR UNKNOWN INDICATION
     Route: 042

REACTIONS (4)
  - Hyperthermia malignant [Recovering/Resolving]
  - Respiratory alkalosis [Unknown]
  - Livedo reticularis [Unknown]
  - Cardiovascular disorder [Unknown]
